FAERS Safety Report 8223735-1 (Version None)
Quarter: 2012Q1

REPORT INFORMATION
  Report Type: 
  Country: None (occurrence: None)
  Receive Date: 20120321
  Receipt Date: 20120311
  Transmission Date: 20120608
  Serious: Yes (Hospitalization)
  Sender: FDA-Public Use
  Company Number: CA-ELI_LILLY_AND_COMPANY-CA201203003151

PATIENT
  Age: 70 Year
  Sex: Female

DRUGS (7)
  1. VITAMIN D [Concomitant]
     Dosage: UNK, UNKNOWN
  2. DEXLANSOPRAZOLE [Concomitant]
     Dosage: 60 MG, QD
     Dates: start: 20120309
  3. PANTOPRAZOLE [Concomitant]
     Dosage: UNK, UNKNOWN
  4. TYLENOL (CAPLET) [Concomitant]
     Dosage: UNK, PRN
  5. CALCIUM CARBONATE [Concomitant]
     Dosage: UNK, UNKNOWN
  6. FORTEO [Suspect]
     Indication: OSTEOPOROSIS
     Dosage: 20 UG, QD
     Route: 058
     Dates: start: 20100428
  7. CRESTOR [Concomitant]
     Dosage: UNK, UNKNOWN

REACTIONS (5)
  - HAEMATEMESIS [None]
  - VERTIGO [None]
  - GASTRITIS [None]
  - BLOOD CALCIUM INCREASED [None]
  - LABYRINTHITIS [None]
